FAERS Safety Report 8531991-5 (Version None)
Quarter: 2012Q3

REPORT INFORMATION
  Report Type: 
  Country: None (occurrence: None)
  Receive Date: 20120723
  Receipt Date: 20120717
  Transmission Date: 20120928
  Serious: Yes (Other)
  Sender: FDA-Public Use
  Company Number: US-PFIZER INC-2012100629

PATIENT
  Sex: Female
  Weight: 90.703 kg

DRUGS (5)
  1. PROTONIX [Suspect]
     Indication: HIATUS HERNIA
  2. EFFEXOR XR [Concomitant]
     Indication: GRIEF REACTION
     Dosage: UNK
  3. LIPITOR [Suspect]
     Indication: LIPIDS INCREASED
  4. PROTONIX [Suspect]
     Indication: GASTROOESOPHAGEAL REFLUX DISEASE
     Dosage: 40 MG, DAILY
     Route: 048
  5. LIPITOR [Suspect]
     Indication: BLOOD CHOLESTEROL INCREASED
     Dosage: UNK, 1X/DAY
     Route: 048
     Dates: start: 20060124

REACTIONS (4)
  - PAIN IN EXTREMITY [None]
  - MUSCULOSKELETAL STIFFNESS [None]
  - MYALGIA [None]
  - ADDISON'S DISEASE [None]
